FAERS Safety Report 4279341-7 (Version None)
Quarter: 2004Q1

REPORT INFORMATION
  Report Type: 
  Country: None (occurrence: None)
  Receive Date: 20040122
  Receipt Date: 20040112
  Transmission Date: 20041129
  Serious: Yes (Hospitalization)
  Sender: FDA-Public Use
  Company Number: FR-JNJFOC-20031000639

PATIENT
  Age: 60 Year
  Sex: Male

DRUGS (1)
  1. EPITOMAX (TOOPIRAMATE) TABLETS [Suspect]
     Indication: DRUG USE FOR UNKNOWN INDICATION
     Dosage: 200 MG, 1 IN 1 TOTAL, ORAL
     Route: 048
     Dates: start: 20030930, end: 20030930

REACTIONS (4)
  - ASPIRATION [None]
  - LOWER RESPIRATORY TRACT INFECTION [None]
  - MEDICATION ERROR [None]
  - SOMNOLENCE [None]
